FAERS Safety Report 18999861 (Version 1)
Quarter: 2021Q1

REPORT INFORMATION
  Report Type: Spontaneous
  Country: RU (occurrence: RU)
  Receive Date: 20210311
  Receipt Date: 20210311
  Transmission Date: 20210420
  Serious: Yes (Death, Other)
  Sender: FDA-Public Use
  Company Number: RU-PFIZER INC-2021242744

PATIENT
  Age: 70 Year
  Sex: Female

DRUGS (1)
  1. XALKORI [Suspect]
     Active Substance: CRIZOTINIB
     Indication: NON-SMALL CELL LUNG CANCER
     Dosage: 250 MG, 2X/DAY
     Route: 048
     Dates: start: 201911, end: 202012

REACTIONS (4)
  - Death [Fatal]
  - Neoplasm progression [Unknown]
  - Cerebrovascular accident [Unknown]
  - Haemoptysis [Unknown]

NARRATIVE: CASE EVENT DATE: 202012
